FAERS Safety Report 25244649 (Version 1)
Quarter: 2025Q2

REPORT INFORMATION
  Report Type: Spontaneous
  Country: CH (occurrence: CH)
  Receive Date: 20250428
  Receipt Date: 20250428
  Transmission Date: 20250716
  Serious: Yes (Life-Threatening, Hospitalization, Other)
  Sender: UCB
  Company Number: None

PATIENT
  Age: 49 Year
  Sex: Male
  Weight: 75 kg

DRUGS (7)
  1. KEPPRA [Suspect]
     Active Substance: LEVETIRACETAM
     Indication: Status epilepticus
     Dosage: 1500 MILLIGRAM, 2X/DAY (BID)
     Route: 042
     Dates: start: 20250313
  2. KEPPRA [Suspect]
     Active Substance: LEVETIRACETAM
     Indication: Off label use
  3. ESKETAMINE [Suspect]
     Active Substance: ESKETAMINE
     Indication: Status epilepticus
     Dosage: 400 MILLIGRAM, HOURLY
     Route: 042
     Dates: start: 20250316
  4. THIOPENTAL [Suspect]
     Active Substance: THIOPENTAL
     Indication: Status epilepticus
     Route: 042
     Dates: start: 20250316, end: 20250316
  5. DICLOFENAC POTASSIUM [Concomitant]
     Active Substance: DICLOFENAC POTASSIUM
     Indication: Jarisch-Herxheimer reaction
     Dosage: 1 SEPARATED DOSES
     Route: 048
     Dates: start: 20250316
  6. VALPROATE SODIUM [Concomitant]
     Active Substance: VALPROATE SODIUM
     Indication: Status epilepticus
     Dosage: 1000 MILLIGRAM, 2X/DAY (BID)
     Route: 048
     Dates: start: 20250314
  7. MIDAZOLAM MALEATE [Concomitant]
     Active Substance: MIDAZOLAM MALEATE
     Indication: Status epilepticus
     Dosage: 75 MILLIGRAM, HOURLY
     Route: 042
     Dates: start: 20250313

REACTIONS (2)
  - Pulseless electrical activity [Not Recovered/Not Resolved]
  - Off label use [Unknown]

NARRATIVE: CASE EVENT DATE: 20250313
